FAERS Safety Report 9836827 (Version 1)
Quarter: 2013Q4

REPORT INFORMATION
  Report Type: Spontaneous
  Country: US (occurrence: None)
  Receive Date: 20131120
  Receipt Date: 20131120
  Transmission Date: 20140711
  Serious: No
  Sender: FDA-Public Use
  Company Number: 1000047337

PATIENT
  Age: 20 Year
  Sex: Female

DRUGS (9)
  1. VIIBRYD (VILAZODONE HYDROCHLORIDE) (10 MILLIGRAM, TABLETS) [Suspect]
     Indication: OBSESSIVE-COMPULSIVE DISORDER
     Dosage: 10 MG (10 MG, 1 IN 1 D), ORAL
     Route: 048
     Dates: start: 20130725
  2. MELOXICAM (MELOXICAM) (MELOXICAM) [Concomitant]
  3. PHENERGAN (PROMETHAZINE) (PROMETHAZINE) [Concomitant]
  4. SINGULAIR (MONTELUKAST SODIUM) (MONTELUKAST SODIUM) [Concomitant]
  5. METFORMIN (METFORMIN) (MEFTFORMIN) [Concomitant]
  6. TIZANIDINE (TIZANIDINE) (TIZANIDINE) [Concomitant]
  7. SOTALOL (SOTALOL) (SOTALOL) [Concomitant]
  8. AMBIEN (ZOLPIDEM TARTRATE) (ZOLPIDEM TARTRATE) [Concomitant]
  9. ALLERGRA (FEXOFENADINE) (FEXOFENADINE) [Concomitant]

REACTIONS (2)
  - Nausea [None]
  - Off label use [None]
